FAERS Safety Report 7238504-9 (Version None)
Quarter: 2011Q1

REPORT INFORMATION
  Report Type: 
  Country: None (occurrence: None)
  Receive Date: 20110119
  Receipt Date: 20110119
  Transmission Date: 20110831
  Serious: Yes (Other)
  Sender: FDA-Public Use
  Company Number: None

PATIENT
  Age: 50 Year
  Sex: Male
  Weight: 83 kg

DRUGS (1)
  1. NOVORAPID INSULIN NORDISK [Suspect]
     Indication: DIABETES MELLITUS
     Dosage: 10 UNITS 3 TIMES A DAY ID
     Route: 026
     Dates: start: 20100913, end: 20110117

REACTIONS (3)
  - PAIN IN EXTREMITY [None]
  - SLEEP DISORDER [None]
  - MUSCLE SPASMS [None]
